FAERS Safety Report 8046120-4 (Version None)
Quarter: 2012Q1

REPORT INFORMATION
  Report Type: 
  Country: None (occurrence: None)
  Receive Date: 20120113
  Receipt Date: 20120109
  Transmission Date: 20120608
  Serious: Yes (Other)
  Sender: FDA-Public Use
  Company Number: US-PFIZER INC-2012007663

PATIENT
  Sex: Female
  Weight: 112 kg

DRUGS (4)
  1. ULTRAM [Concomitant]
     Dosage: 2 DF, 1X/DAY
     Route: 048
  2. PRISTIQ [Suspect]
     Indication: DEPRESSION
     Dosage: 40 MG, DAILY
     Dates: end: 20111201
  3. PRISTIQ [Suspect]
     Indication: ANXIETY
  4. SUDAFED 12 HOUR [Concomitant]
     Indication: SINUSITIS
     Dosage: UNK

REACTIONS (7)
  - HEADACHE [None]
  - PAIN [None]
  - ASTHENIA [None]
  - FEELING ABNORMAL [None]
  - FEELING COLD [None]
  - FATIGUE [None]
  - WEIGHT DECREASED [None]
